FAERS Safety Report 18332279 (Version 1)
Quarter: 2020Q3

REPORT INFORMATION
  Report Type: Spontaneous
  Country: CN (occurrence: CN)
  Receive Date: 20200930
  Receipt Date: 20200930
  Transmission Date: 20201103
  Serious: Yes (Other)
  Sender: FDA-Public Use
  Company Number: CN-PFIZER INC-2020375356

PATIENT
  Age: 88 Year
  Sex: Female

DRUGS (2)
  1. LAI LI XIN [Concomitant]
     Active Substance: LEVOFLOXACIN
     Indication: PNEUMONIA
     Dosage: 0.6 G, 1X/DAY
     Route: 041
     Dates: start: 20200911, end: 20200927
  2. NORVASC [Suspect]
     Active Substance: AMLODIPINE BESYLATE
     Indication: HYPERTENSION
     Dosage: 5 MG, 1X/DAY
     Route: 048
     Dates: start: 20200911, end: 20200927

REACTIONS (5)
  - Dysphagia [Unknown]
  - Oropharyngeal pain [Recovering/Resolving]
  - Vomiting [Unknown]
  - Laryngeal discomfort [Unknown]
  - Nausea [Unknown]

NARRATIVE: CASE EVENT DATE: 202009
